FAERS Safety Report 5635458-3 (Version None)
Quarter: 2008Q1

REPORT INFORMATION
  Report Type: 
  Country: None (occurrence: None)
  Receive Date: 20080222
  Receipt Date: 20080212
  Transmission Date: 20080703
  Serious: Yes (Other)
  Sender: FDA-Public Use
  Company Number: US-PFIZER INC-2008014139

PATIENT
  Sex: Male
  Weight: 161 kg

DRUGS (1)
  1. CHANTIX [Suspect]
     Indication: SMOKING CESSATION THERAPY
     Dates: start: 20080101, end: 20080201

REACTIONS (4)
  - AGITATION [None]
  - ANGER [None]
  - HOMICIDAL IDEATION [None]
  - INSOMNIA [None]
